FAERS Safety Report 6603630-1 (Version None)
Quarter: 2010Q1

REPORT INFORMATION
  Report Type: 
  Country: None (occurrence: None)
  Receive Date: 20100226
  Receipt Date: 20091215
  Transmission Date: 20100710
  Serious: No
  Sender: FDA-Public Use
  Company Number: A0835188A

PATIENT
  Sex: Female

DRUGS (3)
  1. VALTREX [Suspect]
     Indication: GENITAL HERPES
     Dosage: 500MG PER DAY
     Route: 048
     Dates: start: 19950101, end: 20091212
  2. HORMONE REPLACEMENT PATCH [Concomitant]
  3. FLUCONAZOLE [Concomitant]

REACTIONS (10)
  - ABDOMINAL DISTENSION [None]
  - ABDOMINAL PAIN UPPER [None]
  - DIZZINESS [None]
  - DRUG INEFFECTIVE [None]
  - EATING DISORDER [None]
  - GASTRIC DISORDER [None]
  - HERPES ZOSTER [None]
  - MUSCULOSKELETAL DISCOMFORT [None]
  - VITAMIN D DECREASED [None]
  - WEIGHT DECREASED [None]
